FAERS Safety Report 9223683 (Version 3)
Quarter: 2013Q4

REPORT INFORMATION
  Report Type: Report from Study
  Country: US (occurrence: US)
  Receive Date: 20130410
  Receipt Date: 20131007
  Transmission Date: 20140711
  Serious: Yes (Hospitalization)
  Sender: FDA-Public Use
  Company Number: PHHY2013US032199

PATIENT
  Age: 46 Year
  Sex: Male
  Weight: 67 kg

DRUGS (3)
  1. AFINITOR [Suspect]
     Indication: PANCREATIC NEUROENDOCRINE TUMOUR
     Dosage: 10 MG/DAY
     Route: 048
     Dates: start: 20121008, end: 20130808
  2. OCTREOTIDE ACETATE SANDOZ [Suspect]
     Indication: PANCREATIC NEUROENDOCRINE TUMOUR
     Dosage: 20 MG, ON DAY 1 OF 28 DAYS CYCLE
     Route: 030
     Dates: start: 20121008, end: 20130808
  3. BEVACIZUMAB [Suspect]
     Indication: PANCREATIC NEUROENDOCRINE TUMOUR
     Dosage: 10 MG/KG, OVER 30 TO 90 MIN ON DAYS 1 AND 15 OF 28 DAY CYCLE
     Route: 042
     Dates: start: 20121008, end: 20130808

REACTIONS (4)
  - Pneumonia [Not Recovered/Not Resolved]
  - Abdominal pain [Unknown]
  - Hypertension [Unknown]
  - Back pain [Unknown]
